FAERS Safety Report 13481665 (Version 3)
Quarter: 2017Q3

REPORT INFORMATION
  Report Type: Report from Study
  Country: US (occurrence: US)
  Receive Date: 20170425
  Receipt Date: 20170810
  Transmission Date: 20171127
  Serious: No
  Sender: FDA-Public Use
  Company Number: US-AMGEN-USASL2017059695

PATIENT
  Age: 66 Year
  Sex: Female

DRUGS (1)
  1. ENBREL [Suspect]
     Active Substance: ETANERCEPT
     Indication: RHEUMATOID ARTHRITIS
     Dosage: 50 MG, QWK
     Route: 065

REACTIONS (8)
  - Injection site erythema [Unknown]
  - Injection site warmth [Unknown]
  - Asthenia [Unknown]
  - Arthralgia [Unknown]
  - Erythema [Unknown]
  - Joint swelling [Unknown]
  - Fatigue [Unknown]
  - Sinusitis [Not Recovered/Not Resolved]
